FAERS Safety Report 13862198 (Version 1)
Quarter: 2017Q3

REPORT INFORMATION
  Report Type: Spontaneous
  Country: FR (occurrence: FR)
  Receive Date: 20170812
  Receipt Date: 20170812
  Transmission Date: 20171127
  Serious: Yes (Life-Threatening, Other)
  Sender: FDA-Public Use
  Company Number: FR-MYLANLABS-2017M1048710

PATIENT

DRUGS (9)
  1. MYTELASE [Suspect]
     Active Substance: AMBENONIUM CHLORIDE
     Indication: MUSCULAR WEAKNESS
     Dosage: 10 MG, QD (LONG-STANDING TREATMENT)
     Route: 048
     Dates: end: 20170710
  2. ALLOPURINOL ARROW [Concomitant]
     Active Substance: ALLOPURINOL
     Indication: PRODUCT USED FOR UNKNOWN INDICATION
     Dosage: 1 DF, QD
     Route: 048
  3. LERCANIDIPINE ARROW [Concomitant]
     Active Substance: LERCANIDIPINE
     Indication: HYPERTENSION
     Dosage: 1 DF, QD (LONG STANDING TREATMENT)
     Route: 048
  4. FUROSEMIDE ARROW [Concomitant]
     Active Substance: FUROSEMIDE
     Indication: HYPERTENSION
     Dosage: 1 DF, QD (LONG STANDING TRAETMENT)
     Route: 048
  5. FONDAPARINUX [Suspect]
     Active Substance: FONDAPARINUX
     Indication: THROMBOSIS PROPHYLAXIS
     Dosage: 1 DF, QD
     Route: 042
     Dates: start: 20170710
  6. HUMALOG MIX75/25 [Concomitant]
     Active Substance: INSULIN LISPRO
     Indication: DIABETES MELLITUS
     Dosage: 1 DF, QD (KWIKPEN)
     Route: 058
  7. HUMALOG MIX50/50 [Concomitant]
     Active Substance: INSULIN LISPRO
     Indication: DIABETES MELLITUS
     Dosage: 30 IU, BID (LONG STANDING TREATMENT)
     Route: 058
  8. KARDEGIC [Concomitant]
     Active Substance: ASPIRIN LYSINE
     Indication: PRODUCT USED FOR UNKNOWN INDICATION
     Dosage: 1 DF, QD (LONG STANDING TREATMENT)
     Route: 048
  9. DIFFU K [Concomitant]
     Active Substance: POTASSIUM CHLORIDE
     Indication: PROPHYLAXIS
     Dosage: 1 DF, QD (LONG STANDING TREATMENT)
     Route: 048

REACTIONS (1)
  - Torsade de pointes [Recovered/Resolved]

NARRATIVE: CASE EVENT DATE: 20170711
